FAERS Safety Report 4406224-1 (Version None)
Quarter: 2004Q3

REPORT INFORMATION
  Report Type: 
  Country: None (occurrence: None)
  Receive Date: 20040723
  Receipt Date: 20040524
  Transmission Date: 20050211
  Serious: No
  Sender: FDA-Public Use
  Company Number: US-GLAXOSMITHKLINE-A0511899A

PATIENT
  Sex: Male

DRUGS (11)
  1. AVANDIA [Suspect]
     Dosage: 2MG PER DAY
     Route: 048
     Dates: start: 20040514
  2. METFORMIN HCL [Concomitant]
  3. GLUCOTROL [Concomitant]
  4. AMILORIDE [Concomitant]
  5. ENALAPRIL MALEATE [Concomitant]
  6. LEVOXYL [Concomitant]
  7. VICON FORTE [Concomitant]
  8. VITAMIN C [Concomitant]
  9. VITAMIN E [Concomitant]
  10. WELLBUTRIN [Concomitant]
  11. ASPIRIN [Concomitant]

REACTIONS (1)
  - DIARRHOEA [None]
